FAERS Safety Report 4843247-2 (Version None)
Quarter: 2005Q4

REPORT INFORMATION
  Report Type: 
  Country: None (occurrence: None)
  Receive Date: 20051201
  Receipt Date: 20051020
  Transmission Date: 20060501
  Serious: Yes (Hospitalization)
  Sender: FDA-Public Use
  Company Number: US-MERCK-0510USA08453

PATIENT
  Age: 63 Year
  Sex: Male
  Weight: 164 kg

DRUGS (2)
  1. VIOXX [Suspect]
     Route: 048
     Dates: start: 20021001, end: 20040901
  2. TOPROL-XL [Suspect]
     Route: 048

REACTIONS (20)
  - ACUTE MYOCARDIAL INFARCTION [None]
  - ARRHYTHMIA SUPRAVENTRICULAR [None]
  - CORONARY ARTERY OCCLUSION [None]
  - CORONARY ARTERY STENOSIS [None]
  - DIABETES MELLITUS NON-INSULIN-DEPENDENT [None]
  - DIVERTICULUM [None]
  - ECCHYMOSIS [None]
  - EPIDIDYMITIS [None]
  - FATIGUE [None]
  - FUNGAL SKIN INFECTION [None]
  - GROIN INFECTION [None]
  - HAEMANGIOMA [None]
  - HAEMATOMA [None]
  - HYPERLIPIDAEMIA [None]
  - OEDEMA [None]
  - SKIN BACTERIAL INFECTION [None]
  - SKIN DISORDER [None]
  - SLEEP APNOEA SYNDROME [None]
  - SUPRAVENTRICULAR EXTRASYSTOLES [None]
  - VASCULAR PSEUDOANEURYSM [None]
